FAERS Safety Report 8257176-8 (Version None)
Quarter: 2012Q1

REPORT INFORMATION
  Report Type: 
  Country: None (occurrence: None)
  Receive Date: 20120322
  Receipt Date: 20120217
  Transmission Date: 20120608
  Serious: Yes (Hospitalization)
  Sender: FDA-Public Use
  Company Number: UTC-015793

PATIENT
  Age: 74 Year
  Sex: Female
  Weight: 61.82 kg

DRUGS (2)
  1. TYVASO [Suspect]
     Indication: PULMONARY ARTERIAL HYPERTENSION
     Dosage: 18-54 MICROGRAM (4 IN 1 D), INHALATION
     Route: 055
     Dates: start: 20100628
  2. ADCIRCA [Concomitant]

REACTIONS (2)
  - SURGERY [None]
  - BACK DISORDER [None]
